FAERS Safety Report 6447124-5 (Version None)
Quarter: 2009Q4

REPORT INFORMATION
  Report Type: 
  Country: None (occurrence: None)
  Receive Date: 20091119
  Receipt Date: 20091109
  Transmission Date: 20100525
  Serious: Yes (Other)
  Sender: FDA-Public Use
  Company Number: US-PFIZER INC-2009279376

PATIENT
  Sex: Female
  Weight: 67 kg

DRUGS (9)
  1. CHANTIX [Suspect]
     Indication: SMOKING CESSATION THERAPY
     Dosage: 1 MG, 2X/DAY
     Dates: start: 20090801
  2. CYMBALTA [Suspect]
     Dosage: 60 MG, 4X/DAY
  3. CYMBALTA [Suspect]
     Dosage: 60 MG, 1X/DAY
  4. DESYREL [Concomitant]
     Dosage: 50 MG, 2X/DAY
  5. PANCRELIPASE [Concomitant]
     Dosage: UNIT DOSE: 32000; FREQUENCY: 3X/DAY,
  6. TRAZODONE [Concomitant]
     Dosage: 50 MG, 4X/DAY
  7. LORAZEPAM [Concomitant]
  8. CLONAZEPAM [Concomitant]
  9. ENTOCORT EC [Concomitant]
     Indication: COLITIS

REACTIONS (6)
  - ANGER [None]
  - DEPRESSION [None]
  - DRUG INTERACTION [None]
  - HOMICIDAL IDEATION [None]
  - SUICIDAL IDEATION [None]
  - VIOLENCE-RELATED SYMPTOM [None]
